FAERS Safety Report 19475441 (Version 1)
Quarter: 2021Q2

REPORT INFORMATION
  Report Type: Spontaneous
  Country: US (occurrence: US)
  Receive Date: 20210629
  Receipt Date: 20210629
  Transmission Date: 20210717
  Serious: Yes (Other)
  Sender: FDA-Public Use
  Company Number: US-ENDO PHARMACEUTICALS INC-2021-003062

PATIENT
  Age: 59 Year
  Sex: Female

DRUGS (4)
  1. ZANTAC [Suspect]
     Active Substance: RANITIDINE HYDROCHLORIDE
     Indication: IRRITABLE BOWEL SYNDROME
     Dosage: 300 MG, DAILY
     Route: 048
     Dates: start: 200901, end: 201201
  2. RANITIDINE. [Suspect]
     Active Substance: RANITIDINE
     Indication: IRRITABLE BOWEL SYNDROME
     Dosage: 300 MG, DAILY
     Route: 048
     Dates: start: 200901, end: 201201
  3. ZANTAC [Suspect]
     Active Substance: RANITIDINE HYDROCHLORIDE
     Indication: IRRITABLE BOWEL SYNDROME
     Dosage: 300 MG, DAILY
     Route: 048
     Dates: start: 200901, end: 201201
  4. RANITIDINE HYDROCHLORIDE. [Suspect]
     Active Substance: RANITIDINE HYDROCHLORIDE
     Indication: IRRITABLE BOWEL SYNDROME
     Dosage: 300 MG, DAILY
     Route: 048
     Dates: start: 200901, end: 201201

REACTIONS (2)
  - Thyroid cancer [Unknown]
  - Breast cancer stage II [Recovering/Resolving]

NARRATIVE: CASE EVENT DATE: 20060101
